FAERS Safety Report 21204933 (Version 1)
Quarter: 2022Q3

REPORT INFORMATION
  Report Type: Spontaneous
  Country: CN (occurrence: CN)
  Receive Date: 20220812
  Receipt Date: 20220812
  Transmission Date: 20221027
  Serious: Yes (Other)
  Sender: FDA-Public Use
  Company Number: CN-BAYER-2022A112069

PATIENT
  Age: 80 Year
  Sex: Male
  Weight: 50 kg

DRUGS (1)
  1. XARELTO [Suspect]
     Active Substance: RIVAROXABAN
     Indication: Atrial fibrillation
     Dosage: 10 MG, QD
     Route: 048
     Dates: start: 20220405, end: 20220730

REACTIONS (7)
  - Upper gastrointestinal haemorrhage [Recovering/Resolving]
  - Melaena [Recovering/Resolving]
  - Dizziness [Recovering/Resolving]
  - Asthenia [Recovering/Resolving]
  - Chest discomfort [Recovering/Resolving]
  - Underdose [Unknown]
  - Prescribed underdose [Unknown]

NARRATIVE: CASE EVENT DATE: 20220405
